FAERS Safety Report 23936755 (Version 1)
Quarter: 2024Q2

REPORT INFORMATION
  Report Type: Spontaneous
  Country: US (occurrence: US)
  Receive Date: 20240604
  Receipt Date: 20240604
  Transmission Date: 20240716
  Serious: No
  Sender: FDA-Public Use
  Company Number: US-SANOFI-02069334

PATIENT
  Age: 64 Year
  Sex: Female

DRUGS (5)
  1. AMBIEN [Suspect]
     Active Substance: ZOLPIDEM TARTRATE
     Indication: Chronic fatigue syndrome
     Dosage: 12.5 MG, QD
     Dates: start: 1997
  2. AMBIEN [Suspect]
     Active Substance: ZOLPIDEM TARTRATE
     Indication: Fibromyalgia
  3. NORTRIPTYLINE [Concomitant]
     Active Substance: NORTRIPTYLINE
     Dosage: UNK
  4. SONATA [Concomitant]
     Active Substance: ZALEPLON
     Dosage: UNK
  5. LUNESTA [Concomitant]
     Active Substance: ESZOPICLONE
     Dosage: UNK

REACTIONS (6)
  - Sleep disorder [Unknown]
  - Sleep-related eating disorder [Unknown]
  - Sleep talking [Unknown]
  - Somnambulism [Unknown]
  - Abnormal behaviour [Unknown]
  - Product use in unapproved indication [Unknown]

NARRATIVE: CASE EVENT DATE: 19970101
